FAERS Safety Report 25866278 (Version 1)
Quarter: 2025Q3

REPORT INFORMATION
  Report Type: Spontaneous
  Country: CN (occurrence: CN)
  Receive Date: 20250930
  Receipt Date: 20250930
  Transmission Date: 20251021
  Serious: Yes (Hospitalization, Other)
  Sender: GENUS LIFESCIENCES
  Company Number: CN-Genus_Lifesciences-USA-ALL0580202500136

PATIENT
  Age: 7 Year
  Sex: Male

DRUGS (1)
  1. ACETAMINOPHEN\CODEINE PHOSPHATE [Suspect]
     Active Substance: ACETAMINOPHEN\CODEINE PHOSPHATE
     Indication: Upper respiratory tract infection
     Dates: start: 2025, end: 2025

REACTIONS (3)
  - Drug eruption [Recovered/Resolved]
  - Renal impairment [Recovered/Resolved]
  - Product administered to patient of inappropriate age [Recovered/Resolved]

NARRATIVE: CASE EVENT DATE: 20250101
